FAERS Safety Report 9124413 (Version 1)
Quarter: 2013Q1

REPORT INFORMATION
  Report Type: Spontaneous
  Country: TR (occurrence: TR)
  Receive Date: 20130227
  Receipt Date: 20130227
  Transmission Date: 20140127
  Serious: Yes (Death)
  Sender: FDA-Public Use
  Company Number: TR-WATSON-2013-03009

PATIENT
  Age: 49 Year
  Sex: Male

DRUGS (5)
  1. TACROLIMUS (UNKNOWN) [Suspect]
     Indication: IMMUNOSUPPRESSANT DRUG THERAPY
     Dosage: UNK, UNKNOWN
     Route: 065
  2. MYCOPHENOLATE MOFETIL (UNKNOWN) [Suspect]
     Indication: IMMUNOSUPPRESSANT DRUG THERAPY
     Dosage: 1000 MG, BID
     Route: 048
  3. CYCLOSPORINE [Suspect]
     Indication: IMMUNOSUPPRESSANT DRUG THERAPY
     Dosage: 5-10 MG/KG/DAY
  4. PREDNISOLONE (UNKNOWN) [Suspect]
     Indication: IMMUNOSUPPRESSANT DRUG THERAPY
     Dosage: .25 MG/KG, DAILY
     Route: 065
  5. METHYLPREDNISOLONE ACETATE [Suspect]
     Indication: IMMUNOSUPPRESSANT DRUG THERAPY
     Dosage: 100 MG, DAILY
     Route: 048

REACTIONS (6)
  - Sepsis [Fatal]
  - Multi-organ failure [Fatal]
  - Chronic graft versus host disease [Fatal]
  - Transplant rejection [Fatal]
  - Cholestasis [None]
  - Hepatic necrosis [None]
